FAERS Safety Report 25233443 (Version 4)
Quarter: 2025Q2

REPORT INFORMATION
  Report Type: Spontaneous
  Country: AT (occurrence: AT)
  Receive Date: 20250424
  Receipt Date: 20250616
  Transmission Date: 20250717
  Serious: Yes (Other)
  Sender: SANOFI AVENTIS
  Company Number: AT-BIOVITRUM-2025-AT-005492

PATIENT
  Age: 4 Year
  Sex: Male

DRUGS (10)
  1. EFANESOCTOCOG ALFA [Suspect]
     Active Substance: EFANESOCTOCOG ALFA
     Indication: Factor VIII deficiency
     Dosage: 500 IU, QW (AT 11:001X500 I.E PER WEEK 53IU/KG)
     Route: 065
     Dates: start: 20250301
  2. EFANESOCTOCOG ALFA [Suspect]
     Active Substance: EFANESOCTOCOG ALFA
     Dosage: 1000 IU, QW (AT 11:001X1000 I.E PER WEEK 53IU/KG)
     Route: 065
     Dates: start: 20250301
  3. EFANESOCTOCOG ALFA [Suspect]
     Active Substance: EFANESOCTOCOG ALFA
     Dosage: 1000 IU, QW (AT 16:001X1000 I.E PER WEEK 53IU/KG)
     Route: 065
     Dates: start: 20250306
  4. EFANESOCTOCOG ALFA [Suspect]
     Active Substance: EFANESOCTOCOG ALFA
     Dosage: 500 IU, QW (AT 16:001X500 I.E PER WEEK 53IU/KG)
     Route: 065
     Dates: start: 20250306
  5. EFANESOCTOCOG ALFA [Suspect]
     Active Substance: EFANESOCTOCOG ALFA
     Dosage: 500 IU, QW (AT 18:001X500 I.EPER WEEK 53IU/KG)
     Route: 065
     Dates: start: 20250312
  6. EFANESOCTOCOG ALFA [Suspect]
     Active Substance: EFANESOCTOCOG ALFA
     Dosage: 1000 IU, QW (AT 18:001X1000 I.E PER WEEK 53IU/KG)
     Route: 065
     Dates: start: 20250312
  7. EFANESOCTOCOG ALFA [Suspect]
     Active Substance: EFANESOCTOCOG ALFA
     Route: 065
     Dates: start: 20250327
  8. EFANESOCTOCOG ALFA [Suspect]
     Active Substance: EFANESOCTOCOG ALFA
     Route: 065
     Dates: start: 20250411
  9. EFANESOCTOCOG ALFA [Suspect]
     Active Substance: EFANESOCTOCOG ALFA
     Route: 065
     Dates: start: 20250419
  10. ENOXAPARIN SODIUM [Concomitant]
     Active Substance: ENOXAPARIN SODIUM
     Route: 058
     Dates: start: 20250319, end: 202504

REACTIONS (2)
  - Thrombosis [Not Recovered/Not Resolved]
  - Pain [Unknown]

NARRATIVE: CASE EVENT DATE: 20250301
